FAERS Safety Report 5266047-0 (Version None)
Quarter: 2007Q1

REPORT INFORMATION
  Report Type: 
  Country: None (occurrence: None)
  Receive Date: 20070313
  Receipt Date: 20070313
  Transmission Date: 20070707
  Serious: Yes (Hospitalization)
  Sender: FDA-Public Use
  Company Number: None

PATIENT
  Sex: Male
  Weight: 77.4 kg

DRUGS (2)
  1. OXALIPLATIN [Suspect]
     Indication: LUNG NEOPLASM MALIGNANT
     Dosage: 85MG/M2 DAY 1+15 Q28 IV
     Route: 042
     Dates: start: 20060713
  2. DOCETAXEL DAYS 1+8 Q28 DAYS [Suspect]
     Indication: LUNG NEOPLASM MALIGNANT
     Dosage: 30MG/M2 DAYS 1+8 Q28 IV
     Route: 042
     Dates: start: 20060713

REACTIONS (4)
  - ASTHENIA [None]
  - BRAIN OEDEMA [None]
  - HEADACHE [None]
  - MENTAL STATUS CHANGES [None]
